FAERS Safety Report 8349075-8 (Version None)
Quarter: 2012Q2

REPORT INFORMATION
  Report Type: 
  Country: None (occurrence: None)
  Receive Date: 20120510
  Receipt Date: 20120430
  Transmission Date: 20120825
  Serious: Yes (Hospitalization)
  Sender: FDA-Public Use
  Company Number: FR-JNJFOC-20120504121

PATIENT
  Sex: Male
  Weight: 39 kg

DRUGS (2)
  1. AUGMENTIN [Suspect]
     Indication: PARONYCHIA
     Route: 048
     Dates: start: 20120319, end: 20120326
  2. RISPERDAL [Suspect]
     Indication: ABNORMAL BEHAVIOUR
     Dosage: 0.5-0.5-0.5
     Route: 048
     Dates: start: 20101201, end: 20120403

REACTIONS (1)
  - IDIOPATHIC THROMBOCYTOPENIC PURPURA [None]
